FAERS Safety Report 22345950 (Version 2)
Quarter: 2023Q2

REPORT INFORMATION
  Report Type: Report from Study
  Country: CN (occurrence: CN)
  Receive Date: 20230519
  Receipt Date: 20230525
  Transmission Date: 20230722
  Serious: Yes (Life-Threatening)
  Sender: FDA-Public Use
  Company Number: CN-PFIZER INC-PV202300086816

PATIENT
  Age: 53 Year
  Sex: Male
  Weight: 78 kg

DRUGS (15)
  1. CYTARABINE [Suspect]
     Active Substance: CYTARABINE
     Indication: Acute myeloid leukaemia
     Dosage: 1900 MG, 1X/DAY
     Route: 041
     Dates: start: 20230111, end: 20230115
  2. CYTARABINE [Suspect]
     Active Substance: CYTARABINE
     Dosage: 3800 MG, 2X/DAY
     Route: 041
     Dates: start: 20230224, end: 20230224
  3. CYTARABINE [Suspect]
     Active Substance: CYTARABINE
     Dosage: 3800 MG, 2X/DAY
     Route: 041
     Dates: start: 20230226, end: 20230226
  4. CYTARABINE [Suspect]
     Active Substance: CYTARABINE
     Dosage: 3800 MG, 2X/DAY
     Route: 041
     Dates: start: 20230228, end: 20230228
  5. CYTARABINE [Suspect]
     Active Substance: CYTARABINE
     Dosage: 3800 MG, 2X/DAY
     Route: 041
     Dates: start: 20230425, end: 20230425
  6. CYTARABINE [Suspect]
     Active Substance: CYTARABINE
     Dosage: 3800 MG, 2X/DAY
     Route: 041
     Dates: start: 20230427, end: 20230427
  7. CYTARABINE [Suspect]
     Active Substance: CYTARABINE
     Dosage: 3800 MG, 2X/DAY
     Route: 041
     Dates: start: 20230429, end: 20230429
  8. INVESTIGATIONAL PRODUCT [Suspect]
     Active Substance: INVESTIGATIONAL PRODUCT
     Indication: Acute myeloid leukaemia
     Dosage: UNK, 1X/DAY
     Route: 041
     Dates: start: 20230110, end: 20230110
  9. INVESTIGATIONAL PRODUCT [Suspect]
     Active Substance: INVESTIGATIONAL PRODUCT
     Dosage: UNK, 2X/DAY
     Route: 041
     Dates: start: 20230111, end: 20230117
  10. INVESTIGATIONAL PRODUCT [Suspect]
     Active Substance: INVESTIGATIONAL PRODUCT
     Dosage: UNK, 1X/DAY
     Route: 041
     Dates: start: 20230223, end: 20230223
  11. INVESTIGATIONAL PRODUCT [Suspect]
     Active Substance: INVESTIGATIONAL PRODUCT
     Dosage: UNK, 2X/DAY
     Route: 041
     Dates: start: 20230224, end: 20230302
  12. INVESTIGATIONAL PRODUCT [Suspect]
     Active Substance: INVESTIGATIONAL PRODUCT
     Dosage: UNK, 1X/DAY
     Route: 041
     Dates: start: 20230424, end: 20230424
  13. INVESTIGATIONAL PRODUCT [Suspect]
     Active Substance: INVESTIGATIONAL PRODUCT
     Dosage: UNK, 2X/DAY
     Route: 041
     Dates: start: 20230425, end: 20230501
  14. MITOXANTRONE [Suspect]
     Active Substance: MITOXANTRONE HYDROCHLORIDE
     Indication: Acute myeloid leukaemia
     Dosage: 11.4 MG, 1X/DAY
     Route: 041
     Dates: start: 20230111, end: 20230115
  15. ETOPOSIDE [Suspect]
     Active Substance: ETOPOSIDE
     Indication: Acute myeloid leukaemia
     Dosage: 190 MG, 1X/DAY
     Route: 041
     Dates: start: 20230111, end: 20230113

REACTIONS (1)
  - Septic shock [Recovered/Resolved]

NARRATIVE: CASE EVENT DATE: 20230510
